FAERS Safety Report 9714368 (Version 2)
Quarter: 2014Q1

REPORT INFORMATION
  Report Type: Spontaneous
  Country: US (occurrence: US)
  Receive Date: 20131126
  Receipt Date: 20140122
  Transmission Date: 20141002
  Serious: No
  Sender: FDA-Public Use
  Company Number: US-VERTEX PHARMACEUTICALS INC-2013-011179

PATIENT
  Sex: Male

DRUGS (6)
  1. KALYDECO [Suspect]
     Indication: CYSTIC FIBROSIS
     Dosage: UNK
     Dates: start: 201203
  2. PULMOZYME [Concomitant]
  3. SINGULAIR [Concomitant]
  4. ALBUTEROL [Concomitant]
  5. TOBI [Concomitant]
     Dosage: UNK, PRN
  6. CIPROFLOXACIN [Concomitant]

REACTIONS (2)
  - Cough [Unknown]
  - Fatigue [Unknown]
